FAERS Safety Report 9354789 (Version 1)
Quarter: 2013Q2

REPORT INFORMATION
  Report Type: Spontaneous
  Country: US (occurrence: US)
  Receive Date: 20130619
  Receipt Date: 20130619
  Transmission Date: 20140414
  Serious: No
  Sender: FDA-Public Use
  Company Number: US-009507513-1306USA005601

PATIENT
  Sex: Female

DRUGS (3)
  1. EMEND [Suspect]
     Indication: PROPHYLAXIS OF NAUSEA AND VOMITING
     Dosage: 150 MG FORMULATION
     Route: 042
     Dates: start: 201306, end: 201306
  2. ALOXI [Concomitant]
  3. BENADRYL [Concomitant]

REACTIONS (4)
  - Heart rate increased [Recovering/Resolving]
  - Dyspnoea [Recovering/Resolving]
  - Back pain [Recovering/Resolving]
  - Erythema [Recovering/Resolving]
